FAERS Safety Report 16412301 (Version 1)
Quarter: 2019Q2

REPORT INFORMATION
  Report Type: Spontaneous
  Country: FR (occurrence: FR)
  Receive Date: 20190610
  Receipt Date: 20190610
  Transmission Date: 20190711
  Serious: Yes (Other)
  Sender: FDA-Public Use
  Company Number: FR-ALLERGAN-1924422US

PATIENT
  Sex: Female

DRUGS (2)
  1. DALBAVANCIN HCL UNK [Suspect]
     Active Substance: DALBAVANCIN HYDROCHLORIDE
     Indication: BACTERIAL SEPSIS
     Dosage: UNK
     Route: 065
     Dates: start: 20190603, end: 20190603
  2. DALBAVANCIN HCL UNK [Suspect]
     Active Substance: DALBAVANCIN HYDROCHLORIDE
     Dosage: UNK
     Route: 065
     Dates: start: 20190527, end: 20190527

REACTIONS (2)
  - Off label use [Unknown]
  - Cholestasis [Unknown]
